FAERS Safety Report 13820104 (Version 1)
Quarter: 2017Q3

REPORT INFORMATION
  Report Type: Spontaneous
  Country: US (occurrence: US)
  Receive Date: 20170801
  Receipt Date: 20170801
  Transmission Date: 20171127
  Serious: Yes (Hospitalization, Disabling)
  Sender: FDA-Public Use
  Company Number: None

PATIENT
  Sex: Female

DRUGS (2)
  1. XANAX [Concomitant]
     Active Substance: ALPRAZOLAM
  2. COPAXONE [Suspect]
     Active Substance: GLATIRAMER ACETATE
     Indication: MULTIPLE SCLEROSIS
     Dosage: QUANTITY:12 INJECTION(S);OTHER FREQUENCY:3 TIMES A WEEK;OTHER ROUTE:INJECTION?

REACTIONS (4)
  - Dizziness [None]
  - Rash [None]
  - Speech disorder [None]
  - Pruritus [None]

NARRATIVE: CASE EVENT DATE: 20170731
